FAERS Safety Report 21693209 (Version 1)
Quarter: 2022Q4

REPORT INFORMATION
  Report Type: Spontaneous
  Country: US (occurrence: None)
  Receive Date: 20221206
  Receipt Date: 20221206
  Transmission Date: 20230112
  Serious: Yes (Hospitalization)
  Sender: FDA-Public Use
  Company Number: None

PATIENT
  Sex: Female

DRUGS (2)
  1. PIQRAY [Suspect]
     Active Substance: ALPELISIB
     Indication: Breast cancer female
     Dosage: OTHER FREQUENCY : 1 TIME DAILY;?
     Route: 048
     Dates: start: 202207
  2. CAPECITABINE [Suspect]
     Active Substance: CAPECITABINE
     Indication: Breast cancer female
     Dosage: OTHER FREQUENCY : BID D1-14/21DAY;?
     Route: 048
     Dates: start: 202208

REACTIONS (4)
  - Cellulitis [None]
  - Skin exfoliation [None]
  - Peripheral swelling [None]
  - Skin laceration [None]
